FAERS Safety Report 5640056-1 (Version None)
Quarter: 2008Q1

REPORT INFORMATION
  Report Type: 
  Country: None (occurrence: None)
  Receive Date: 20080227
  Receipt Date: 20080210
  Transmission Date: 20080703
  Serious: No
  Sender: FDA-Public Use
  Company Number: US-BAYER-200813707NA

PATIENT
  Sex: Female

DRUGS (1)
  1. YAZ [Suspect]
     Dosage: TOTAL DAILY DOSE: 1 DF
     Route: 048

REACTIONS (1)
  - PREGNANCY ON ORAL CONTRACEPTIVE [None]
